FAERS Safety Report 9477452 (Version 1)
Quarter: 2013Q3

REPORT INFORMATION
  Report Type: Spontaneous
  Country: US (occurrence: US)
  Receive Date: 20130826
  Receipt Date: 20130826
  Transmission Date: 20140515
  Serious: Yes (Other)
  Sender: FDA-Public Use
  Company Number: US-JNJFOC-20130809021

PATIENT
  Age: 37 Year
  Sex: Male
  Weight: 108.86 kg

DRUGS (7)
  1. ROGAINE EXTRA STRENGTH MEN^S 5% UNSCENTED [Suspect]
     Route: 061
  2. ROGAINE EXTRA STRENGTH MEN^S 5% UNSCENTED [Suspect]
     Indication: ALOPECIA
     Dosage: HALF CAPFUL
     Route: 061
     Dates: end: 20130815
  3. UNSPECIFIED INGREDIENT [Suspect]
     Indication: CARDIAC DISORDER
     Dosage: 6 YEAR
  4. FISH OIL [Concomitant]
     Indication: VITAMIN SUPPLEMENTATION
     Dosage: TWO YEARS
     Route: 065
  5. CARVEDILOL [Concomitant]
     Indication: CARDIAC DISORDER
     Dosage: SIX YEARS
     Route: 065
  6. ATORVASTATIN [Concomitant]
     Indication: CARDIAC DISORDER
     Dosage: SIX YEARS
     Route: 065
  7. EFFIENT [Concomitant]
     Indication: CARDIAC DISORDER
     Dosage: ONE YEAR
     Route: 065

REACTIONS (1)
  - Cardiac disorder [Not Recovered/Not Resolved]
